FAERS Safety Report 17085278 (Version 4)
Quarter: 2019Q4

REPORT INFORMATION
  Report Type: Spontaneous
  Country: CA (occurrence: CA)
  Receive Date: 20191127
  Receipt Date: 20191216
  Transmission Date: 20200122
  Serious: Yes (Hospitalization, Other)
  Sender: FDA-Public Use
  Company Number: CA-ROCHE-2478665

PATIENT
  Age: 61 Year
  Sex: Female
  Weight: 64.92 kg

DRUGS (9)
  1. AVASTIN [Suspect]
     Active Substance: BEVACIZUMAB
     Indication: EYE HAEMORRHAGE
     Route: 050
     Dates: start: 20190930, end: 20190930
  2. THYROXINE [Concomitant]
     Active Substance: LEVOTHYROXINE
     Dosage: ONGOING YES
     Route: 048
     Dates: start: 2007
  3. CELEXA [Concomitant]
     Active Substance: CITALOPRAM HYDROBROMIDE
     Indication: DEPRESSION
     Dosage: ONGOING NO
     Route: 048
  4. AMLODIPINE [Concomitant]
     Active Substance: AMLODIPINE BESYLATE
     Indication: HYPERTENSION
     Dosage: ONGOING YES
     Route: 048
  5. INDOMETHACIN [INDOMETACIN] [Concomitant]
     Active Substance: INDOMETHACIN
     Indication: PAIN
     Dosage: ONGOING YES
     Route: 048
     Dates: start: 2018
  6. CELEXA [Concomitant]
     Active Substance: CITALOPRAM HYDROBROMIDE
     Dosage: ONGOING NO
     Route: 048
  7. INDOMETHACIN [INDOMETACIN] [Concomitant]
     Active Substance: INDOMETHACIN
     Indication: VERTIGO
  8. CELEXA [Concomitant]
     Active Substance: CITALOPRAM HYDROBROMIDE
     Dosage: ONGOING NO
     Route: 048
  9. CELEXA [Concomitant]
     Active Substance: CITALOPRAM HYDROBROMIDE
     Indication: ANXIETY
     Dosage: ONGOING NO
     Route: 048
     Dates: start: 2007, end: 2018

REACTIONS (8)
  - Eye infection [Unknown]
  - Product use in unapproved indication [Unknown]
  - Blindness unilateral [Not Recovered/Not Resolved]
  - Memory impairment [Not Recovered/Not Resolved]
  - Headache [Not Recovered/Not Resolved]
  - Bacterial infection [Not Recovered/Not Resolved]
  - Product contamination [Unknown]
  - Off label use [Unknown]

NARRATIVE: CASE EVENT DATE: 20190930
